FAERS Safety Report 10714878 (Version 2)
Quarter: 2015Q1

REPORT INFORMATION
  Report Type: Spontaneous
  Country: US (occurrence: US)
  Receive Date: 20150115
  Receipt Date: 20150311
  Transmission Date: 20150721
  Serious: No
  Sender: FDA-Public Use
  Company Number: US-GLAXOSMITHKLINE-US2014GSK047028

PATIENT
  Age: 68 Year
  Sex: Male
  Weight: 98.87 kg

DRUGS (16)
  1. MEKINIST [Suspect]
     Active Substance: TRAMETINIB DIMETHYL SULFOXIDE
     Indication: MALIGNANT MELANOMA
     Dosage: 2 MG, QD
     Route: 048
     Dates: start: 20141031
  2. MEKINIST [Suspect]
     Active Substance: TRAMETINIB DIMETHYL SULFOXIDE
     Dosage: 1.5 MG, QD (0.5 MG CAPSULE)
     Dates: start: 20141028
  3. ATORVASTATIN CALCIUM. [Concomitant]
     Active Substance: ATORVASTATIN CALCIUM
  4. TAMSULOSIN [Concomitant]
     Active Substance: TAMSULOSIN
  5. MELOXICAM. [Concomitant]
     Active Substance: MELOXICAM
  6. VESICARE [Concomitant]
     Active Substance: SOLIFENACIN SUCCINATE
  7. ILEVRO [Concomitant]
     Active Substance: NEPAFENAC
  8. TAFINLAR [Suspect]
     Active Substance: DABRAFENIB MESYLATE
     Indication: MALIGNANT MELANOMA
     Dosage: 150 MG, BID
     Route: 048
     Dates: start: 20141031
  9. LOSARTAN POTASSIUM. [Concomitant]
     Active Substance: LOSARTAN POTASSIUM
  10. CLOPIDOGREL [Concomitant]
     Active Substance: CLOPIDOGREL BISULFATE
  11. PREDNISOLONE ACETATE. [Concomitant]
     Active Substance: PREDNISOLONE ACETATE
  12. TOPROL XL [Concomitant]
     Active Substance: METOPROLOL SUCCINATE
  13. TAFINLAR [Suspect]
     Active Substance: DABRAFENIB MESYLATE
     Dosage: 150 MG, BID
     Route: 048
     Dates: start: 20141028
  14. AFLURIA [Concomitant]
     Active Substance: INFLUENZA VIRUS VACCINE TRIVALENT TYPE A+B AFLURIA
  15. DIAZEPAM. [Concomitant]
     Active Substance: DIAZEPAM
  16. BESIVANCE [Concomitant]
     Active Substance: BESIFLOXACIN

REACTIONS (4)
  - Adverse drug reaction [Unknown]
  - Abdominal discomfort [Recovering/Resolving]
  - Chills [Recovering/Resolving]
  - Pyrexia [Unknown]

NARRATIVE: CASE EVENT DATE: 20141108
